FAERS Safety Report 7002154-X (Version None)
Quarter: 2010Q3

REPORT INFORMATION
  Report Type: 
  Country: None (occurrence: None)
  Receive Date: 20100920
  Receipt Date: 20090811
  Transmission Date: 20110219
  Serious: Yes (Hospitalization)
  Sender: FDA-Public Use
  Company Number: US-ASTRAZENECA-2009SE07529

PATIENT
  Age: 82 Year
  Sex: Male

DRUGS (3)
  1. SEROQUEL [Suspect]
     Indication: DEMENTIA ALZHEIMER'S TYPE
     Route: 048
  2. INSULIN [Concomitant]
  3. DEPAKENE [Concomitant]

REACTIONS (2)
  - AGITATION [None]
  - SOMNOLENCE [None]
